FAERS Safety Report 24285013 (Version 1)
Quarter: 2024Q3

REPORT INFORMATION
  Report Type: Spontaneous
  Country: US (occurrence: US)
  Receive Date: 20240905
  Receipt Date: 20240905
  Transmission Date: 20241016
  Serious: No
  Sender: Haleon PLC
  Company Number: US-HALEON-2194423

PATIENT
  Sex: Female

DRUGS (2)
  1. NICODERM CQ [Suspect]
     Active Substance: NICOTINE
     Indication: Product used for unknown indication
     Dosage: STRENGTH: 14MILLIGRAM
     Route: 065
  2. NICODERM CQ [Suspect]
     Active Substance: NICOTINE

REACTIONS (2)
  - Application site rash [Unknown]
  - Product adhesion issue [Unknown]
